FAERS Safety Report 5147141-1 (Version None)
Quarter: 2006Q4

REPORT INFORMATION
  Report Type: 
  Country: None (occurrence: None)
  Receive Date: 20061103
  Receipt Date: 20061018
  Transmission Date: 20070319
  Serious: Yes (Death)
  Sender: FDA-Public Use
  Company Number: S06-UKI-03376-01

PATIENT
  Age: 83 Year
  Sex: Female

DRUGS (5)
  1. CITALOPRAM HYDROBROMIDE [Suspect]
     Dosage: 40 MG QD PO
     Route: 048
     Dates: start: 20051101
  2. CITALOPRAM HYDROBROMIDE [Suspect]
     Dosage: 20 MG QD PO
     Route: 048
     Dates: end: 20051101
  3. AMITRIPTYLINE HCL [Concomitant]
  4. NORTRIPTYLINE HCL [Concomitant]
  5. ATENOLOL [Concomitant]

REACTIONS (13)
  - ASPIRATION [None]
  - CARDIOMEGALY [None]
  - CARDIOVASCULAR DISORDER [None]
  - CHOKING [None]
  - COLD SWEAT [None]
  - HEPATIC CYST [None]
  - HEPATIC NEOPLASM MALIGNANT [None]
  - INJURY ASPHYXIATION [None]
  - LOSS OF CONSCIOUSNESS [None]
  - NAUSEA [None]
  - NEPHROLITHIASIS [None]
  - OVERDOSE [None]
  - VOMITING [None]
